FAERS Safety Report 9789150 (Version 2)
Quarter: 2014Q1

REPORT INFORMATION
  Report Type: Spontaneous
  Country: US (occurrence: US)
  Receive Date: 20131230
  Receipt Date: 20140227
  Transmission Date: 20141002
  Serious: Yes (Hospitalization, Other)
  Sender: FDA-Public Use
  Company Number: US-RB-061898-13

PATIENT
  Age: 0 None
  Sex: Female

DRUGS (3)
  1. BUPRENORPHINE GENERIC [Suspect]
     Indication: DRUG DEPENDENCE
     Route: 064
     Dates: start: 201307, end: 20130821
  2. BUSPAR [Suspect]
     Indication: ANXIETY
     Route: 064
     Dates: start: 201308, end: 20130821
  3. PRENATAL VITAMINS [Suspect]
     Indication: NUTRITIONAL SUPPLEMENTATION
     Dosage: ONE DAILY; FURTHER DOSING DETAILS UNKNOWN
     Route: 064
     Dates: end: 20130821

REACTIONS (4)
  - Foetal exposure during pregnancy [Recovered/Resolved]
  - Neonatal aspiration [Recovered/Resolved]
  - Respiratory disorder neonatal [Recovered/Resolved]
  - Gastrooesophageal reflux disease [Recovering/Resolving]
